FAERS Safety Report 13301919 (Version 1)
Quarter: 2017Q1

REPORT INFORMATION
  Report Type: Spontaneous
  Country: US (occurrence: US)
  Receive Date: 20170307
  Receipt Date: 20170307
  Transmission Date: 20170428
  Serious: No
  Sender: FDA-Public Use
  Company Number: None

PATIENT
  Age: 65 Year
  Sex: Female
  Weight: 48.6 kg

DRUGS (5)
  1. BRIVIACT [Suspect]
     Active Substance: BRIVARACETAM
     Indication: SEIZURE
     Dosage: ?          QUANTITY:1 TABLET(S);?
     Route: 048
     Dates: start: 20170211
  2. ALBUTEROL INHALER [Concomitant]
     Active Substance: ALBUTEROL
  3. VITAMIN AND MINERAL SUPPLEMENTS [Concomitant]
  4. SYNTHROID [Concomitant]
     Active Substance: LEVOTHYROXINE SODIUM
  5. TAURINE (AMINO ACID) [Concomitant]

REACTIONS (12)
  - Insomnia [None]
  - Aphasia [None]
  - Memory impairment [None]
  - Dizziness [None]
  - Balance disorder [None]
  - Confusional state [None]
  - Fatigue [None]
  - Abdominal pain [None]
  - Abdominal distension [None]
  - Nausea [None]
  - Chromaturia [None]
  - Injury [None]

NARRATIVE: CASE EVENT DATE: 20170211
